FAERS Safety Report 11875962 (Version 5)
Quarter: 2016Q1

REPORT INFORMATION
  Report Type: Spontaneous
  Country: CA (occurrence: CA)
  Receive Date: 20151229
  Receipt Date: 20160321
  Transmission Date: 20160526
  Serious: Yes (Hospitalization, Other)
  Sender: FDA-Public Use
  Company Number: CA-GLAXOSMITHKLINE-CA2014GSK040840

PATIENT
  Sex: Female
  Weight: 53 kg

DRUGS (2)
  1. BENLYSTA [Suspect]
     Active Substance: BELIMUMAB
     Indication: SYSTEMIC LUPUS ERYTHEMATOSUS
     Dosage: 520 MG, Z
     Dates: start: 20140815
  2. BENLYSTA [Suspect]
     Active Substance: BELIMUMAB
     Dosage: 570 MG, UNK
     Route: 042
     Dates: start: 20151111

REACTIONS (8)
  - Asthenia [Unknown]
  - Asthma [Unknown]
  - Respiratory tract infection [Recovered/Resolved]
  - Lung disorder [Unknown]
  - Infection [Unknown]
  - Bronchitis [Unknown]
  - Productive cough [Unknown]
  - Pyrexia [Unknown]
